FAERS Safety Report 6202223-8 (Version None)
Quarter: 2009Q2

REPORT INFORMATION
  Report Type: 
  Country: None (occurrence: None)
  Receive Date: 20090526
  Receipt Date: 20090428
  Transmission Date: 20091009
  Serious: Yes (Hospitalization)
  Sender: FDA-Public Use
  Company Number: DE-ROCHE-633538

PATIENT
  Sex: Male

DRUGS (3)
  1. PEG-INTERFERON ALFA 2A (RO 25-8310) [Suspect]
     Dosage: LAST DOSE PRIOR TO SAE WAS 11 NOVEMBER 2008
     Route: 058
  2. INSULIN [Concomitant]
     Dosage: AS PER PLAN.
  3. RAMIPRIL [Concomitant]
     Dosage: TDD: REPORTED AS 1 DFX1/DAY. DRUG REPORTED AS RAMIPRIL 5 MG.

REACTIONS (1)
  - BLADDER NEOPLASM [None]
